FAERS Safety Report 21621945 (Version 2)
Quarter: 2023Q1

REPORT INFORMATION
  Report Type: Spontaneous
  Country: US (occurrence: US)
  Receive Date: 20221121
  Receipt Date: 20230110
  Transmission Date: 20230418
  Serious: No
  Sender: FDA-Public Use
  Company Number: US-BRISTOL-MYERS SQUIBB COMPANY-2022-140784

PATIENT
  Age: 61 Year
  Sex: Male
  Weight: 72.12 kg

DRUGS (1)
  1. LENALIDOMIDE [Suspect]
     Active Substance: LENALIDOMIDE
     Indication: Plasma cell myeloma
     Dosage: D1-14 EVERY 21 DAYS
     Route: 048
     Dates: start: 20220603

REACTIONS (3)
  - Gastrointestinal viral infection [Recovered/Resolved]
  - Off label use [Unknown]
  - Blood magnesium decreased [Unknown]

NARRATIVE: CASE EVENT DATE: 20220603
